FAERS Safety Report 21066991 (Version 4)
Quarter: 2022Q3

REPORT INFORMATION
  Report Type: Spontaneous
  Country: US (occurrence: US)
  Receive Date: 20220712
  Receipt Date: 20220822
  Transmission Date: 20221027
  Serious: Yes (Hospitalization)
  Sender: FDA-Public Use
  Company Number: US-NOVOPROD-911887

PATIENT
  Age: 74 Year
  Sex: Female
  Weight: 88 kg

DRUGS (3)
  1. TRESIBA [Suspect]
     Active Substance: INSULIN DEGLUDEC
     Indication: Type 2 diabetes mellitus
     Dosage: 50.0,U,
     Dates: start: 20160620, end: 20200608
  2. NOVOLOG [Suspect]
     Active Substance: INSULIN ASPART
     Dosage: 30.0,U,
     Dates: start: 20170724, end: 20200910
  3. NOVOLOG [Suspect]
     Active Substance: INSULIN ASPART
     Dosage: UNK

REACTIONS (1)
  - Joint abscess [Recovered/Resolved]

NARRATIVE: CASE EVENT DATE: 20220222
